FAERS Safety Report 5353151-1 (Version None)
Quarter: 2007Q2

REPORT INFORMATION
  Report Type: 
  Country: None (occurrence: None)
  Receive Date: 20070607
  Receipt Date: 20070523
  Transmission Date: 20071010
  Serious: Yes (Death)
  Sender: FDA-Public Use
  Company Number: GXKR2007JPO4583

PATIENT
  Age: 71 Year
  Sex: Male
  Weight: 66.2 kg

DRUGS (2)
  1. PREDNISOLONE [Suspect]
     Indication: VASCULITIS
     Dosage: 60 MG
     Dates: start: 20050921, end: 20051017
  2. METHYLPREDNISOLONE [Suspect]
     Indication: VASCULITIS
     Dosage: 1 G, DAILY
     Dates: start: 20050918, end: 20050920

REACTIONS (3)
  - BRONCHOPULMONARY ASPERGILLOSIS [None]
  - PNEUMONIA CYTOMEGALOVIRAL [None]
  - RESPIRATORY FAILURE [None]
